FAERS Safety Report 8217742-2 (Version None)
Quarter: 2012Q1

REPORT INFORMATION
  Report Type: 
  Country: None (occurrence: None)
  Receive Date: 20120315
  Receipt Date: 20120229
  Transmission Date: 20120608
  Serious: Yes (Hospitalization)
  Sender: FDA-Public Use
  Company Number: EU-2012-10083

PATIENT
  Sex: Female
  Weight: 54 kg

DRUGS (19)
  1. METOCLOPRAMIDE HYDROCHLORIDE [Concomitant]
  2. EMEND [Concomitant]
  3. LEVOTHYROXINE SODIUM [Concomitant]
  4. ATACAND [Concomitant]
  5. DIMENHYDRINATE [Concomitant]
  6. NACI (NACI) [Concomitant]
  7. DEXAMETHASONE SODIUM POSPHATE [Concomitant]
  8. PANTOPRAZOLE SODIUM [Concomitant]
  9. CABOPLATIN (CABOPLATIN) [Concomitant]
  10. FENOFIBRATE [Concomitant]
  11. ZOFRAN [Concomitant]
  12. ETOPOSIDE [Concomitant]
  13. SAMSCA [Suspect]
     Indication: INAPPROPRIATE ANTIDIURETIC HORMONE SECRETION
     Dosage: 15 MG MILLIGRAM (S), DAILY DOSE, ORAL, 15 MG MILLIGRAM (S), SINGLE
     Route: 048
     Dates: start: 20120117, end: 20120117
  14. SAMSCA [Suspect]
     Indication: INAPPROPRIATE ANTIDIURETIC HORMONE SECRETION
     Dosage: 15 MG MILLIGRAM (S), DAILY DOSE, ORAL, 15 MG MILLIGRAM (S), SINGLE
     Route: 048
     Dates: start: 20111221, end: 20111221
  15. SAMSCA [Suspect]
     Indication: INAPPROPRIATE ANTIDIURETIC HORMONE SECRETION
     Dosage: 15 MG MILLIGRAM (S), DAILY DOSE, ORAL, 15 MG MILLIGRAM (S), SINGLE
     Route: 048
     Dates: start: 20120109, end: 20120109
  16. SALINE (SALINE) [Concomitant]
  17. HALDOL [Concomitant]
  18. RANITIDINE HCL [Concomitant]
  19. CLEMASTINE FUMARATE [Concomitant]

REACTIONS (4)
  - VOMITING [None]
  - GENERAL PHYSICAL HEALTH DETERIORATION [None]
  - CONDITION AGGRAVATED [None]
  - NAUSEA [None]
